FAERS Safety Report 16124720 (Version 2)
Quarter: 2019Q2

REPORT INFORMATION
  Report Type: Spontaneous
  Country: DK (occurrence: DK)
  Receive Date: 20190327
  Receipt Date: 20190405
  Transmission Date: 20190711
  Serious: Yes (Hospitalization)
  Sender: FDA-Public Use
  Company Number: DK-009507513-1903DNK010283

PATIENT
  Age: 63 Year
  Sex: Female

DRUGS (5)
  1. UNIKALK FORTE [Concomitant]
     Indication: VITAMIN SUPPLEMENTATION
     Dosage: STRENGTH: UNKNOWN
     Route: 048
     Dates: start: 20130715
  2. FOLINIC ACID [Concomitant]
     Active Substance: LEUCOVORIN
     Indication: VITAMIN SUPPLEMENTATION
     Dosage: STRENGTH: 5 MG. DOSE:  5 MG TORSDAG OG 5 MG L?RDAG.
     Route: 048
     Dates: start: 20130715, end: 20181022
  3. ALENDRONATE SODIUM. [Suspect]
     Active Substance: ALENDRONATE SODIUM
     Indication: OSTEOPOROSIS
     Dosage: STRENGTH: 70 MG
     Route: 048
     Dates: start: 201405, end: 20180604
  4. METHOTREXATE. [Suspect]
     Active Substance: METHOTREXATE
     Indication: RHEUMATOID ARTHRITIS
     Dosage: DOSE: UNKNOWN STRENGTH: UNKNOWN
     Route: 058
     Dates: start: 20130715
  5. CORTICOSTEROIDS (UNSPECIFIED) [Concomitant]
     Active Substance: UNSPECIFIED INGREDIENT
     Indication: STEROID THERAPY
     Dosage: DOSE: UNKNOWN, STRENGTH: UNKNOWN

REACTIONS (4)
  - Pain [Unknown]
  - Fracture delayed union [Unknown]
  - Wheelchair user [Unknown]
  - Stress fracture [Unknown]

NARRATIVE: CASE EVENT DATE: 201510
